FAERS Safety Report 5467774-2 (Version None)
Quarter: 2007Q3

REPORT INFORMATION
  Report Type: 
  Country: None (occurrence: None)
  Receive Date: 20070926
  Receipt Date: 20070920
  Transmission Date: 20080115
  Serious: Yes (Death, Hospitalization)
  Sender: FDA-Public Use
  Company Number: PHBS2007CH15637

PATIENT
  Age: 44 Year
  Sex: Male

DRUGS (3)
  1. CYCLOSPORINE [Suspect]
     Indication: RENAL TRANSPLANT
     Dates: start: 19910901
  2. METHYLPREDNISOLONE [Suspect]
     Indication: RENAL TRANSPLANT
     Dates: start: 19910901
  3. AZATHIOPRINE [Suspect]
     Indication: RENAL TRANSPLANT
     Dates: start: 19910901

REACTIONS (7)
  - ENTEROBACTER INFECTION [None]
  - KIDNEY TRANSPLANT REJECTION [None]
  - PERITONITIS BACTERIAL [None]
  - PNEUMONIA FUNGAL [None]
  - POST PROCEDURAL HAEMORRHAGE [None]
  - REMOVAL OF RENAL TRANSPLANT [None]
  - ZYGOMYCOSIS [None]
